FAERS Safety Report 5525953-X (Version None)
Quarter: 2007Q4

REPORT INFORMATION
  Report Type: 
  Country: None (occurrence: None)
  Receive Date: 20071126
  Receipt Date: 20071121
  Transmission Date: 20080405
  Serious: Yes (Death, Hospitalization)
  Sender: FDA-Public Use
  Company Number: CN-PFIZER INC-2007097609

PATIENT
  Age: 99 Year
  Sex: Female
  Weight: 40 kg

DRUGS (3)
  1. FRAGMIN [Suspect]
     Indication: ACUTE MYOCARDIAL INFARCTION
     Route: 058
     Dates: start: 20071109, end: 20071118
  2. ASPIRIN [Concomitant]
     Dates: start: 20071109, end: 20071119
  3. PLAVIX [Concomitant]
     Dates: start: 20071109, end: 20071119

REACTIONS (3)
  - ABDOMINAL WALL HAEMATOMA [None]
  - ANAEMIA [None]
  - CARDIAC FAILURE [None]
